FAERS Safety Report 6848374-6 (Version None)
Quarter: 2010Q3

REPORT INFORMATION
  Report Type: 
  Country: None (occurrence: None)
  Receive Date: 20100716
  Receipt Date: 20100712
  Transmission Date: 20110219
  Serious: Yes (Other)
  Sender: FDA-Public Use
  Company Number: CH-ROCHE-714766

PATIENT
  Age: 24 Week
  Sex: Male
  Weight: 0.8 kg

DRUGS (3)
  1. GANCICLOVIR SODIUM [Suspect]
     Dosage: DOSES: 12 MG/KG BODY WEIGHT IN 2 DAILY DOSES.
     Route: 042
  2. BETAMETHASONE [Concomitant]
     Indication: LUNG DISORDER
  3. CAFFEINE CITRATE [Concomitant]

REACTIONS (4)
  - BRONCHOPULMONARY DYSPLASIA [None]
  - DEAFNESS BILATERAL [None]
  - NEUTROPENIA [None]
  - RETINOPATHY [None]
